FAERS Safety Report 13913884 (Version 1)
Quarter: 2017Q3

REPORT INFORMATION
  Report Type: Spontaneous
  Country: US (occurrence: US)
  Receive Date: 20170828
  Receipt Date: 20170828
  Transmission Date: 20171127
  Serious: No
  Sender: FDA-Public Use
  Company Number: US-ROCHE-1140822

PATIENT
  Age: 11 Year
  Sex: Male
  Weight: 29.06 kg

DRUGS (2)
  1. NUTROPIN [Suspect]
     Active Substance: SOMATROPIN
     Indication: GROWTH HORMONE DEFICIENCY
  2. NUTROPIN [Suspect]
     Active Substance: SOMATROPIN
     Indication: BODY HEIGHT BELOW NORMAL
     Route: 030

REACTIONS (3)
  - Thirst [Unknown]
  - Arthralgia [Unknown]
  - Muscle strain [Unknown]

NARRATIVE: CASE EVENT DATE: 200010
